FAERS Safety Report 4432815-8 (Version None)
Quarter: 2004Q3

REPORT INFORMATION
  Report Type: 
  Country: None (occurrence: None)
  Receive Date: 20040823
  Receipt Date: 20040805
  Transmission Date: 20050211
  Serious: Yes (Disabling)
  Sender: FDA-Public Use
  Company Number: S04-PRT-00593-01

PATIENT
  Age: 57 Year
  Sex: Female

DRUGS (2)
  1. CIPRALEX              (ESCITALOPRAM) [Suspect]
     Indication: DEPRESSION
     Dosage: 10 MG QD PO
     Route: 048
     Dates: start: 20030605, end: 20031006
  2. LORAZEPAM [Concomitant]

REACTIONS (3)
  - DIABETES MELLITUS [None]
  - HEPATIC STEATOSIS [None]
  - HEPATOMEGALY [None]
